FAERS Safety Report 4622183-0 (Version None)
Quarter: 2005Q1

REPORT INFORMATION
  Report Type: 
  Country: None (occurrence: None)
  Receive Date: 20050329
  Receipt Date: 20050321
  Transmission Date: 20050727
  Serious: Yes (Hospitalization)
  Sender: FDA-Public Use
  Company Number: 205512

PATIENT
  Age: 48 Year
  Sex: Male

DRUGS (3)
  1. EFALIZUMAB(EFALIZUMAB) PWDR + SOLVENT INJECTION SOLN, 125 MG [Suspect]
     Indication: PSORIASIS
     Dosage: 1MG/KG, 1 WEEK, SUBCUTANEOUS
     Route: 058
     Dates: start: 20030922
  2. HYDROCORTISONE [Concomitant]
  3. SIMVASTATIN [Concomitant]

REACTIONS (4)
  - ATELECTASIS [None]
  - CONDITION AGGRAVATED [None]
  - PANCREATITIS [None]
  - PSORIASIS [None]
